FAERS Safety Report 8057564-9 (Version None)
Quarter: 2012Q1

REPORT INFORMATION
  Report Type: 
  Country: None (occurrence: None)
  Receive Date: 20120120
  Receipt Date: 20120106
  Transmission Date: 20120608
  Serious: Yes (Life-Threatening, Hospitalization, Other)
  Sender: FDA-Public Use
  Company Number: GB-AMGEN-GBRSP2011040301

PATIENT
  Age: 70 Year
  Sex: Female

DRUGS (6)
  1. ACETYLSALICYLIC ACID SRT [Concomitant]
     Dosage: 75 MG, UNK
  2. SIMVASTATIN [Concomitant]
     Dosage: 80 MG, UNK
  3. ADIZEM [Concomitant]
     Dosage: UNK
  4. ENBREL [Suspect]
     Indication: PSORIASIS
     Dosage: 25 MG, 2X/WEEK
     Dates: start: 20081201, end: 20110701
  5. RAMIPRIL [Concomitant]
     Dosage: 10 MG, UNK
  6. NICORANDIL [Concomitant]
     Dosage: UNK

REACTIONS (3)
  - PERIPHERAL ISCHAEMIA [None]
  - THROMBOSIS [None]
  - EMBOLISM [None]
